FAERS Safety Report 7477658-6 (Version None)
Quarter: 2011Q2

REPORT INFORMATION
  Report Type: 
  Country: None (occurrence: None)
  Receive Date: 20110513
  Receipt Date: 20110405
  Transmission Date: 20111010
  Serious: Yes (Other)
  Sender: FDA-Public Use
  Company Number: US-BAYER-201035906NA

PATIENT
  Age: 19 Year
  Sex: Female
  Weight: 63.492 kg

DRUGS (2)
  1. YASMIN [Suspect]
     Dates: start: 20070618, end: 20070717
  2. YASMIN [Suspect]
     Dates: start: 20051201, end: 20060301

REACTIONS (3)
  - CHOLECYSTITIS [None]
  - ABORTION SPONTANEOUS [None]
  - GALLBLADDER DISORDER [None]
